FAERS Safety Report 8519164-3 (Version None)
Quarter: 2012Q3

REPORT INFORMATION
  Report Type: 
  Country: None (occurrence: None)
  Receive Date: 20120709
  Receipt Date: 20120621
  Transmission Date: 20120928
  Serious: Yes (Disabling, Other)
  Sender: FDA-Public Use
  Company Number: 2012P1043432

PATIENT
  Age: 82 Year
  Sex: Female
  Weight: 35.8342 kg

DRUGS (14)
  1. ASPIRIN [Concomitant]
  2. DIOVAN [Concomitant]
  3. METFORMIN HCL [Concomitant]
  4. SPIRAVA [Concomitant]
  5. WARFARIN SODIUM [Suspect]
     Indication: VASCULAR GRAFT
     Dosage: 6 MG, TIW, PO, 4 MG; QIW; PO
     Route: 048
  6. STOOL SOFTENER [Concomitant]
  7. MECLIZINE HCL [Concomitant]
  8. ATIVIAN [Concomitant]
  9. PLAVIX [Concomitant]
  10. ZOCOR [Concomitant]
  11. CARBIDOPA [Concomitant]
  12. NEBULIZER [Concomitant]
  13. COREG [Concomitant]
  14. ADVAIR DISKUS 100/50 [Concomitant]

REACTIONS (2)
  - SPINAL COMPRESSION FRACTURE [None]
  - BACK PAIN [None]
